FAERS Safety Report 17131072 (Version 1)
Quarter: 2019Q4

REPORT INFORMATION
  Report Type: Report from Study
  Country: US (occurrence: US)
  Receive Date: 20191209
  Receipt Date: 20191209
  Transmission Date: 20200122
  Serious: Yes (Hospitalization)
  Sender: FDA-Public Use
  Company Number: US-GILEAD-2019-0441269

PATIENT
  Age: 75 Year
  Sex: Female

DRUGS (19)
  1. ALPHA LIPOIC [Concomitant]
  2. BUMETANIDE. [Concomitant]
     Active Substance: BUMETANIDE
  3. FLAXSEED [Concomitant]
     Active Substance: FLAX SEED
  4. LUTEIN [TAGETES SPP.] [Concomitant]
  5. COQ10 [UBIDECARENONE] [Concomitant]
     Active Substance: UBIDECARENONE
  6. HYOMAX [Concomitant]
     Active Substance: HYOSCYAMINE SULFATE
  7. RECLAST [Concomitant]
     Active Substance: ZOLEDRONIC ACID
  8. BIOFLAVIN [Concomitant]
  9. CITRICAL [CALCIUM] [Concomitant]
  10. LIPITOR [Concomitant]
     Active Substance: ATORVASTATIN CALCIUM
  11. RENOVA [GEMIFLOXACIN MESILATE] [Concomitant]
  12. AMBRISENTAN [Suspect]
     Active Substance: AMBRISENTAN
     Indication: PULMONARY ARTERIAL HYPERTENSION
     Dosage: 5 MG, QD
     Route: 065
     Dates: start: 20190112
  13. TADALAFIL. [Concomitant]
     Active Substance: TADALAFIL
  14. LOSARTAN POTASSSIUM [Concomitant]
  15. OMEPRAZOLE. [Concomitant]
     Active Substance: OMEPRAZOLE
  16. REFRESH [CARBOMER] [Concomitant]
  17. RESTASIS [Concomitant]
     Active Substance: CYCLOSPORINE
  18. FOLIC ACID. [Concomitant]
     Active Substance: FOLIC ACID
  19. METOLAZONE. [Concomitant]
     Active Substance: METOLAZONE

REACTIONS (2)
  - Dyspnoea [Not Recovered/Not Resolved]
  - Fluid retention [Not Recovered/Not Resolved]

NARRATIVE: CASE EVENT DATE: 20191101
